FAERS Safety Report 6026414-4 (Version None)
Quarter: 2009Q1

REPORT INFORMATION
  Report Type: 
  Country: None (occurrence: None)
  Receive Date: 20090102
  Receipt Date: 20081224
  Transmission Date: 20090719
  Serious: Yes (Hospitalization)
  Sender: FDA-Public Use
  Company Number: NL-AMGEN-UK323533

PATIENT
  Sex: Male

DRUGS (3)
  1. NEULASTA [Suspect]
     Indication: NEUTROPENIA
     Route: 058
     Dates: start: 20081115, end: 20081115
  2. CISPLATIN [Concomitant]
  3. GEMCITABINE [Concomitant]

REACTIONS (5)
  - DYSKINESIA [None]
  - HYPOAESTHESIA [None]
  - PARAESTHESIA [None]
  - PARALYSIS [None]
  - PRURITUS [None]
